FAERS Safety Report 9183322 (Version 1)
Quarter: 2013Q1

REPORT INFORMATION
  Report Type: Spontaneous
  Country: US (occurrence: US)
  Receive Date: 20130322
  Receipt Date: 20130322
  Transmission Date: 20140127
  Serious: No
  Sender: FDA-Public Use
  Company Number: US-PFIZER INC-2013091098

PATIENT
  Age: 10 Year
  Sex: Male
  Weight: 31 kg

DRUGS (3)
  1. XYNTHA [Suspect]
     Dosage: 2000 IU, UNK
     Dates: start: 201205, end: 2012
  2. AMOXICILLIN [Concomitant]
     Indication: BACTERIAL INFECTION
     Dosage: 875 MG, UNK
     Route: 048
  3. ADVATE [Concomitant]
     Dosage: UNK

REACTIONS (1)
  - Rash [Recovered/Resolved]
